FAERS Safety Report 5713836-1 (Version None)
Quarter: 2008Q2

REPORT INFORMATION
  Report Type: 
  Country: None (occurrence: None)
  Receive Date: 20080421
  Receipt Date: 20080407
  Transmission Date: 20081010
  Serious: Yes (Other)
  Sender: FDA-Public Use
  Company Number: 20080087

PATIENT
  Age: 50 Year
  Sex: Female

DRUGS (3)
  1. VENOFER [Suspect]
     Indication: IRON DEFICIENCY ANAEMIA
     Dosage: 200 MG ONCE INTRAVEOUS
     Route: 042
     Dates: start: 20080130, end: 20080130
  2. LITHIUM CARBONATE [Concomitant]
  3. FLUOXETINE [Concomitant]

REACTIONS (8)
  - CHILLS [None]
  - ERYTHEMA [None]
  - MALAISE [None]
  - MYALGIA [None]
  - NAUSEA [None]
  - PHARYNGEAL ERYTHEMA [None]
  - VIRAL INFECTION [None]
  - VOMITING [None]
